FAERS Safety Report 25868406 (Version 1)
Quarter: 2025Q4

REPORT INFORMATION
  Report Type: Spontaneous
  Country: US (occurrence: US)
  Receive Date: 20251001
  Receipt Date: 20251001
  Transmission Date: 20260118
  Serious: Yes (Death)
  Sender: ROCHE
  Company Number: US-ROCHE-10000396874

PATIENT
  Sex: Female

DRUGS (5)
  1. ACTEMRA [Suspect]
     Active Substance: TOCILIZUMAB
     Indication: Cytokine release syndrome
     Dosage: 80MG/4ML
     Route: 042
     Dates: start: 202507
  2. CARBOPLATIN [Concomitant]
     Active Substance: CARBOPLATIN
  3. OPDIVO [Concomitant]
     Active Substance: NIVOLUMAB
  4. PACLITAXEL MDV [Concomitant]
  5. YERVOY SDV [Concomitant]

REACTIONS (2)
  - Death [Fatal]
  - Off label use [Unknown]
